FAERS Safety Report 8374477-3 (Version None)
Quarter: 2012Q2

REPORT INFORMATION
  Report Type: 
  Country: None (occurrence: None)
  Receive Date: 20120521
  Receipt Date: 20120514
  Transmission Date: 20120825
  Serious: Yes (Other)
  Sender: FDA-Public Use
  Company Number: CHPA2012JP009588

PATIENT
  Sex: Female
  Weight: 56 kg

DRUGS (4)
  1. ALBUTEROL SULFATE [Concomitant]
     Indication: ASTHMA
     Dosage: UNK, UNK
  2. SYMBICORT [Concomitant]
     Indication: ASTHMA
     Dosage: UNK, UNK
  3. VOLTAREN [Suspect]
     Indication: MYALGIA
     Dosage: UNK, UNK
     Route: 061
     Dates: start: 20120403, end: 20120417
  4. BUFFERIN [Suspect]
     Indication: DYSMENORRHOEA
     Dosage: 2 DF, UNK
     Route: 048
     Dates: start: 20120417

REACTIONS (7)
  - ASTHMA [None]
  - TREMOR [None]
  - RESPIRATORY DISTRESS [None]
  - OFF LABEL USE [None]
  - NAUSEA [None]
  - COUGH [None]
  - DRUG ADMINISTERED AT INAPPROPRIATE SITE [None]
